FAERS Safety Report 11444964 (Version 1)
Quarter: 2015Q3

REPORT INFORMATION
  Report Type: Report from Study
  Country: BR (occurrence: BR)
  Receive Date: 20150902
  Receipt Date: 20150902
  Transmission Date: 20151125
  Serious: Yes (Death, Hospitalization, Other)
  Sender: FDA-Public Use
  Company Number: PHHY2015BR105192

PATIENT
  Age: 86 Year
  Sex: Female

DRUGS (1)
  1. DIOVAN HCT [Suspect]
     Active Substance: HYDROCHLOROTHIAZIDE\VALSARTAN
     Indication: HYPERTENSION
     Dosage: 1.5 DF, QD (1 TABLET IN THE MORNING AND HALF TABLET AT NIGHT)
     Route: 065
     Dates: start: 201503

REACTIONS (7)
  - Death [Fatal]
  - Cardiac arrest [Unknown]
  - Hepatic neoplasm [Unknown]
  - Nausea [Unknown]
  - Paralysis [Unknown]
  - Wrong technique in product usage process [Unknown]
  - Malaise [Unknown]

NARRATIVE: CASE EVENT DATE: 20150703
